FAERS Safety Report 17393565 (Version 1)
Quarter: 2020Q1

REPORT INFORMATION
  Report Type: Spontaneous
  Country: US (occurrence: US)
  Receive Date: 20200208
  Receipt Date: 20200208
  Transmission Date: 20200409
  Serious: No
  Sender: FDA-Public Use
  Company Number: US-009507513-2002USA002018

PATIENT
  Sex: Female
  Weight: 106.59 kg

DRUGS (3)
  1. PRINIVIL [Suspect]
     Active Substance: LISINOPRIL
     Indication: DIABETES MELLITUS
  2. PRINIVIL [Suspect]
     Active Substance: LISINOPRIL
     Indication: RENAL DISORDER
  3. PRINIVIL [Suspect]
     Active Substance: LISINOPRIL
     Indication: BLOOD PRESSURE INCREASED

REACTIONS (1)
  - Product use in unapproved indication [Unknown]
